FAERS Safety Report 10784125 (Version 1)
Quarter: 2015Q1

REPORT INFORMATION
  Report Type: Spontaneous
  Country: BR (occurrence: BR)
  Receive Date: 20150211
  Receipt Date: 20150211
  Transmission Date: 20150721
  Serious: Yes (Other)
  Sender: FDA-Public Use
  Company Number: BR-AMGEN-BRASP2015011775

PATIENT
  Age: 55 Year
  Sex: Female
  Weight: 61 kg

DRUGS (3)
  1. ENBREL [Suspect]
     Active Substance: ETANERCEPT
     Indication: RHEUMATOID ARTHRITIS
     Dosage: 50 MG, 1X/WEEK
     Route: 058
     Dates: start: 201211
  2. RECONTER [Concomitant]
     Active Substance: ESCITALOPRAM OXALATE
     Dosage: HALF TABLET (5 MG, STRENGTH: 10MG), 1X/DAY
  3. ATENOLOL. [Concomitant]
     Active Substance: ATENOLOL
     Dosage: HALF TABLET STRENGTH 25MG IN THE MORNING AND 1 TABLET STRENGTH 25MG AT NIGHT
     Route: 048

REACTIONS (2)
  - Panic disorder [Unknown]
  - Gallbladder disorder [Unknown]

NARRATIVE: CASE EVENT DATE: 2013
